FAERS Safety Report 11746212 (Version 4)
Quarter: 2016Q1

REPORT INFORMATION
  Report Type: Spontaneous
  Country: US (occurrence: US)
  Receive Date: 20151117
  Receipt Date: 20160322
  Transmission Date: 20160525
  Serious: Yes (Death, Life-Threatening, Hospitalization, Other)
  Sender: FDA-Public Use
  Company Number: US-MDT-ADR-2015-02168

PATIENT
  Age: 44 Year
  Sex: Female

DRUGS (19)
  1. HYDROCODONE BITARTRATE AND ACETAMINOPHEN [Suspect]
     Active Substance: ACETAMINOPHEN\HYDROCODONE BITARTRATE
     Route: 065
  2. DILAUDID [Suspect]
     Active Substance: HYDROMORPHONE HYDROCHLORIDE
     Dosage: 4.0024 MG/DAY
     Route: 037
  3. CLONIDINE. [Suspect]
     Active Substance: CLONIDINE
     Dosage: 124.96 MCG/DAY
     Route: 037
  4. BACLOFEN, COMPOUNDED ORAL SUSPENSION 20MG/ML [Suspect]
     Active Substance: BACLOFEN
     Dosage: 159.87 MCG/DAY
     Route: 037
  5. BUPIVACAINE [Suspect]
     Active Substance: BUPIVACAINE
     Dosage: 29.991 MG/DAY
     Route: 037
  6. BUPIVACAINE [Suspect]
     Active Substance: BUPIVACAINE
     Dosage: 18.744 MG/DAY
     Route: 037
  7. DILAUDID [Suspect]
     Active Substance: HYDROMORPHONE HYDROCHLORIDE
     Dosage: 3.9967 MG/DAY),
     Route: 037
  8. KETAMINE [Suspect]
     Active Substance: KETAMINE
     Dosage: 119.90 MCG/DAY
     Route: 037
  9. KETAMINE [Suspect]
     Active Substance: KETAMINE
     Dosage: 149.96MCG/DAY
     Route: 037
  10. BACLOFEN, COMPOUNDED ORAL SUSPENSION 20MG/ML [Suspect]
     Active Substance: BACLOFEN
     Dosage: 266.82 MCG/DAY
     Route: 037
  11. BACLOFEN, COMPOUNDED ORAL SUSPENSION 20MG/ML [Suspect]
     Active Substance: BACLOFEN
     Indication: CANCER PAIN
     Dosage: 124.96 MCG/DAY
     Route: 037
  12. DILAUDID [Suspect]
     Active Substance: HYDROMORPHONE HYDROCHLORIDE
     Dosage: 2.4993 MG/DAY
     Route: 037
  13. OXYCODONE ER [Suspect]
     Active Substance: OXYCODONE
     Route: 065
  14. DILAUDID [Suspect]
     Active Substance: HYDROMORPHONE HYDROCHLORIDE
     Dosage: 4.9985 MG/DAY
     Route: 037
  15. CLONIDINE. [Suspect]
     Active Substance: CLONIDINE
     Dosage: 299.91MCG/DAY
     Route: 037
  16. BUPIVACAINE [Suspect]
     Active Substance: BUPIVACAINE
     Dosage: 20.012 MG/DAY
     Route: 037
  17. CLONIDINE. [Suspect]
     Active Substance: CLONIDINE
     Dosage: 266.82 MCG/DAY
     Route: 037
  18. CLONIDINE. [Suspect]
     Active Substance: CLONIDINE
     Dosage: 239.80 MCG/DAY
     Route: 037
  19. BACLOFEN, COMPOUNDED ORAL SUSPENSION 20MG/ML [Suspect]
     Active Substance: BACLOFEN
     Dosage: 199.94 MCG/DAY
     Route: 037

REACTIONS (9)
  - Overdose [Unknown]
  - Pain [Unknown]
  - Sedation [Recovered/Resolved]
  - Drug withdrawal syndrome [Unknown]
  - Abasia [Unknown]
  - Adverse drug reaction [Unknown]
  - Pulmonary embolism [Fatal]
  - Dizziness [Unknown]
  - Dysarthria [Unknown]

NARRATIVE: CASE EVENT DATE: 20150904
